FAERS Safety Report 13325534 (Version 2)
Quarter: 2017Q2

REPORT INFORMATION
  Report Type: Spontaneous
  Country: US (occurrence: US)
  Receive Date: 20170310
  Receipt Date: 20170404
  Transmission Date: 20170830
  Serious: Yes (Other)
  Sender: FDA-Public Use
  Company Number: US-BAUSCH-BL-2017-005942

PATIENT
  Age: 67 Year
  Sex: Female
  Weight: 61.74 kg

DRUGS (6)
  1. LOTEMAX [Suspect]
     Active Substance: LOTEPREDNOL ETABONATE
     Indication: PROPHYLAXIS AGAINST TRANSPLANT REJECTION
     Dosage: IN BOTH EYES
     Route: 047
     Dates: start: 201608, end: 20170125
  2. LOTEMAX [Suspect]
     Active Substance: LOTEPREDNOL ETABONATE
     Dosage: TO BOTH EYES
     Route: 047
     Dates: start: 2016, end: 201608
  3. LOTEMAX [Suspect]
     Active Substance: LOTEPREDNOL ETABONATE
     Indication: PROPHYLAXIS AGAINST TRANSPLANT REJECTION
     Dosage: TWICE DAILY TO THE LEFT EYE AND ONCE DAILY TO THE RIGHT EYE
     Route: 047
     Dates: start: 2002
  4. NADOLOL. [Concomitant]
     Active Substance: NADOLOL
     Indication: HYPERTENSION
     Route: 048
  5. SYNTHROID [Concomitant]
     Active Substance: LEVOTHYROXINE SODIUM
     Indication: THYROID DISORDER
     Route: 048
  6. LOTEMAX [Suspect]
     Active Substance: LOTEPREDNOL ETABONATE
     Route: 047
     Dates: start: 20170306, end: 20170324

REACTIONS (5)
  - Intraocular pressure increased [Not Recovered/Not Resolved]
  - Dry eye [Recovered/Resolved]
  - Corneal graft rejection [Recovered/Resolved]
  - Off label use [Unknown]
  - Product physical issue [Unknown]

NARRATIVE: CASE EVENT DATE: 2016
